FAERS Safety Report 8374715-7 (Version None)
Quarter: 2012Q2

REPORT INFORMATION
  Report Type: 
  Country: None (occurrence: None)
  Receive Date: 20120521
  Receipt Date: 20120515
  Transmission Date: 20120825
  Serious: Yes (Life-Threatening)
  Sender: FDA-Public Use
  Company Number: CH-FRI-1000030449

PATIENT
  Sex: Female

DRUGS (14)
  1. SINTROM [Suspect]
     Indication: ATRIAL FIBRILLATION
     Dosage: 3 MG
     Route: 048
     Dates: end: 20120220
  2. ZOFRAN [Suspect]
     Indication: NAUSEA
     Dosage: 96 MG
     Route: 050
     Dates: start: 20120215, end: 20120304
  3. TORSEMIDE [Suspect]
     Dosage: 10 MG
     Route: 048
  4. LORAZEPAM [Concomitant]
     Indication: ANXIETY DISORDER
     Route: 048
  5. SINTROM [Suspect]
     Indication: ATRIAL FLUTTER
  6. ZOLPIDEM [Concomitant]
     Indication: SLEEP DISORDER
  7. VITAMIN D3 + CALCIUM TAB 500 MG [Concomitant]
     Indication: OSTEOPOROSIS
     Dosage: 1000 MG
  8. FLOXAPEN [Concomitant]
     Indication: SPONDYLOARTHROPATHY
     Dosage: 12000 MG
     Route: 050
     Dates: start: 20120125
  9. DIGOXIN [Concomitant]
     Indication: ATRIAL FIBRILLATION
     Dosage: 0.25 MG
     Route: 048
  10. ZOFRAN [Suspect]
     Indication: VOMITING
  11. MORPHINE [Concomitant]
     Indication: SPONDYLOARTHROPATHY
     Dosage: 15 MG
     Route: 048
     Dates: start: 20120125
  12. LAXOBERON [Concomitant]
     Indication: CONSTIPATION
     Dosage: 40 GTT
     Route: 048
     Dates: start: 20120125
  13. CITALOPRAM HYDROBROMIDE [Suspect]
     Indication: DEPRESSION
     Dosage: 10 MG
     Route: 048
  14. DIGOXIN [Concomitant]
     Indication: ATRIAL FLUTTER

REACTIONS (1)
  - INTERNATIONAL NORMALISED RATIO INCREASED [None]
